FAERS Safety Report 9443128 (Version 2)
Quarter: 2013Q3

REPORT INFORMATION
  Report Type: Spontaneous
  Country: US (occurrence: US)
  Receive Date: 20130806
  Receipt Date: 20130815
  Transmission Date: 20140515
  Serious: No
  Sender: FDA-Public Use
  Company Number: US-009507513-1308USA002679

PATIENT
  Age: 12 Year
  Sex: 0

DRUGS (2)
  1. COPPERTONE CONTINUOUS SPRAY SPF 30 [Suspect]
     Indication: PRODUCT USED FOR UNKNOWN INDICATION
     Dosage: UNK, UNKNOWN
     Route: 061
  2. COPPERTONE CONTINUOUS SPRAY SPF 30 [Suspect]
     Dosage: UNK

REACTIONS (1)
  - Rash erythematous [Unknown]
